FAERS Safety Report 14327866 (Version 2)
Quarter: 2018Q1

REPORT INFORMATION
  Report Type: Spontaneous
  Country: GB (occurrence: GB)
  Receive Date: 20171227
  Receipt Date: 20180116
  Transmission Date: 20180509
  Serious: Yes (Congenital Anomaly, Other)
  Sender: FDA-Public Use
  Company Number: GB-ABBVIE-17P-167-2204593-00

PATIENT

DRUGS (1)
  1. EPILIM [Suspect]
     Active Substance: VALPROATE SODIUM
     Indication: MATERNAL EXPOSURE TIMING UNSPECIFIED
     Route: 064

REACTIONS (16)
  - Asthma [Unknown]
  - Breathing-related sleep disorder [Unknown]
  - Autism spectrum disorder [Unknown]
  - Anxiety [Unknown]
  - Unevaluable event [Unknown]
  - Pain in extremity [Unknown]
  - Arthropathy [Unknown]
  - Sleep apnoea syndrome [Unknown]
  - Speech disorder [Unknown]
  - Attention deficit/hyperactivity disorder [Unknown]
  - Foetal anticonvulsant syndrome [Unknown]
  - Abnormal behaviour [Unknown]
  - Gastrointestinal disorder [Unknown]
  - Fatigue [Unknown]
  - Communication disorder [Unknown]
  - Foetal exposure during pregnancy [Unknown]
